FAERS Safety Report 6406486-5 (Version None)
Quarter: 2009Q4

REPORT INFORMATION
  Report Type: 
  Country: None (occurrence: None)
  Receive Date: 20091019
  Receipt Date: 20091005
  Transmission Date: 20100525
  Serious: Yes (Death)
  Sender: FDA-Public Use
  Company Number: ES-GENENTECH-291656

PATIENT
  Sex: Male

DRUGS (5)
  1. BEVACIZUMAB [Suspect]
     Indication: COLORECTAL CANCER METASTATIC
     Dosage: 487 MG, Q3W
     Route: 042
     Dates: start: 20070327
  2. CAPECITABINE [Suspect]
     Indication: COLORECTAL CANCER
     Dosage: 1600 MG, 14 X Q21D
     Route: 048
     Dates: start: 20070527
  3. OXALIPLATIN [Suspect]
     Indication: COLORECTAL CANCER
     Dosage: 226 MG, Q3W
     Route: 042
     Dates: start: 20070327
  4. DEXAMETASON [Concomitant]
     Indication: DRUG USE FOR UNKNOWN INDICATION
     Dosage: UNK
     Dates: start: 20070327, end: 20090805
  5. GRANISETRON HCL [Concomitant]
     Indication: DRUG USE FOR UNKNOWN INDICATION
     Dosage: UNK
     Dates: start: 20070327, end: 20090805

REACTIONS (1)
  - CARDIOGENIC SHOCK [None]
